FAERS Safety Report 8881234 (Version 1)
Quarter: 2012Q4

REPORT INFORMATION
  Report Type: 
  Country: US (occurrence: US)
  Receive Date: 20121031
  Receipt Date: 20121031
  Transmission Date: 20130627
  Serious: Yes (Hospitalization, Other)
  Sender: FDA-Public Use
  Company Number: US-FRI-1000039715

PATIENT
  Age: 48 Year
  Sex: Female

DRUGS (4)
  1. PROPRANOLOL ER 60 MG [Suspect]
  2. VALPROIC ACID [Suspect]
  3. COUMADIN [Concomitant]
  4. DULOXETINE [Concomitant]

REACTIONS (6)
  - Acute hepatic failure [Recovered/Resolved]
  - Hepatic encephalopathy [None]
  - Asterixis [None]
  - Autoimmune hepatitis [None]
  - Hepatic necrosis [None]
  - Liver transplant [None]
